FAERS Safety Report 4572604-7 (Version None)
Quarter: 2005Q1

REPORT INFORMATION
  Report Type: 
  Country: None (occurrence: None)
  Receive Date: 20050208
  Receipt Date: 20050201
  Transmission Date: 20050727
  Serious: Yes (Other)
  Sender: FDA-Public Use
  Company Number: 200510869US

PATIENT
  Age: 53 Year
  Sex: Female

DRUGS (2)
  1. ARAVA [Suspect]
     Indication: RHEUMATOID ARTHRITIS
  2. CORTICOSTEROIDS [Concomitant]
     Dosage: DOSE: UNKNOWN

REACTIONS (1)
  - HEPATIC NEOPLASM [None]
